FAERS Safety Report 10096714 (Version 2)
Quarter: 2014Q2

REPORT INFORMATION
  Report Type: Spontaneous
  Country: IT (occurrence: IT)
  Receive Date: 20140422
  Receipt Date: 20140422
  Transmission Date: 20141212
  Serious: Yes (Congenital Anomaly)
  Sender: FDA-Public Use
  Company Number: PHHY2014IT042322

PATIENT
  Sex: 0

DRUGS (2)
  1. ESCITALOPRAM [Suspect]
     Dosage: MATERNAL DOSE: 10 MG/DAY
     Route: 064
  2. ALPRAZOLAM [Suspect]
     Dosage: MATERNAL DOSE: 0.25 MG/KG

REACTIONS (2)
  - Low birth weight baby [Unknown]
  - Foetal exposure during pregnancy [Unknown]
